FAERS Safety Report 16087976 (Version 1)
Quarter: 2019Q1

REPORT INFORMATION
  Report Type: Spontaneous
  Country: US (occurrence: US)
  Receive Date: 20190319
  Receipt Date: 20190319
  Transmission Date: 20190418
  Serious: No
  Sender: FDA-Public Use
  Company Number: US-GLAXOSMITHKLINE-US2019045351

PATIENT
  Age: 49 Year
  Sex: Female

DRUGS (1)
  1. BENLYSTA [Suspect]
     Active Substance: BELIMUMAB
     Indication: PRODUCT USED FOR UNKNOWN INDICATION
     Dosage: 200 MG, WE
     Route: 058
     Dates: end: 201812

REACTIONS (9)
  - Xanthelasma [Unknown]
  - Influenza [Recovered/Resolved]
  - Cough [Recovered/Resolved]
  - Multiple allergies [Unknown]
  - Pain [Recovered/Resolved]
  - Pyrexia [Recovered/Resolved]
  - Bronchitis [Recovered/Resolved]
  - Nasal congestion [Recovered/Resolved]
  - Fatigue [Recovered/Resolved]

NARRATIVE: CASE EVENT DATE: 201810
